FAERS Safety Report 15869500 (Version 1)
Quarter: 2019Q1

REPORT INFORMATION
  Report Type: Spontaneous
  Country: FR (occurrence: FR)
  Receive Date: 20190125
  Receipt Date: 20190125
  Transmission Date: 20190417
  Serious: Yes (Other)
  Sender: FDA-Public Use
  Company Number: FR-PFM-2019-00960

PATIENT

DRUGS (2)
  1. NAVELBINE [Suspect]
     Active Substance: VINORELBINE TARTRATE
     Indication: LUNG SQUAMOUS CELL CARCINOMA STAGE III
     Dosage: 50 MG CYCLICAL
     Route: 042
     Dates: start: 20180919, end: 20181010
  2. CISPLATINE ACCORD [Concomitant]
     Active Substance: CISPLATIN
     Indication: LUNG SQUAMOUS CELL CARCINOMA STAGE III
     Dosage: 147 MG CYCLICAL
     Route: 042
     Dates: start: 20180919, end: 20181030

REACTIONS (3)
  - Atrial flutter [Recovered/Resolved]
  - Cardiac failure [Not Recovered/Not Resolved]
  - Chest discomfort [Recovered/Resolved]

NARRATIVE: CASE EVENT DATE: 20180919
